FAERS Safety Report 24868491 (Version 1)
Quarter: 2025Q1

REPORT INFORMATION
  Report Type: Report from Study
  Country: US (occurrence: US)
  Receive Date: 20250121
  Receipt Date: 20250121
  Transmission Date: 20250409
  Serious: Yes (Other)
  Sender: pharmaAND
  Company Number: US-Pharmaand-2025000015

PATIENT
  Sex: Female

DRUGS (1)
  1. RUBRACA [Suspect]
     Active Substance: RUCAPARIB CAMSYLATE
     Indication: Ovarian cancer
     Dosage: 300 MG, EVERY 12 HOURS
     Route: 048
     Dates: start: 20230414

REACTIONS (4)
  - Neoplasm malignant [Unknown]
  - Carbohydrate antigen 125 increased [Unknown]
  - Alopecia [Unknown]
  - Product dose omission in error [Recovered/Resolved]
